FAERS Safety Report 17007113 (Version 38)
Quarter: 2023Q4

REPORT INFORMATION
  Report Type: Spontaneous
  Country: DE (occurrence: DE)
  Receive Date: 20191107
  Receipt Date: 20231020
  Transmission Date: 20240109
  Serious: Yes (Hospitalization, Other)
  Sender: FDA-Public Use
  Company Number: DE-002147023-PHHY2019DE098478

PATIENT
  Age: 47 Year
  Sex: Female
  Weight: 61 kg

DRUGS (10)
  1. LETROZOLE [Suspect]
     Active Substance: LETROZOLE
     Indication: Breast cancer metastatic
     Dosage: 2.5 MILLIGRAM, ONCE A DAY(2.5 MG, QD)
     Route: 048
     Dates: start: 20190307
  2. LETROZOLE [Suspect]
     Active Substance: LETROZOLE
     Dosage: 2.5 MILLIGRAM, ONCE A DAY
     Route: 048
     Dates: start: 20190417
  3. FULVESTRANT [Suspect]
     Active Substance: FULVESTRANT
     Indication: Breast cancer metastatic
     Dosage: 500 MILLIGRAM(500 MG, Q2W (DAILY DOSE, EVERY 2 WEEKS))
     Route: 030
     Dates: start: 20230417
  4. KISQALI [Suspect]
     Active Substance: RIBOCICLIB
     Indication: Breast cancer metastatic
     Dosage: 600 MILLIGRAM, ONCE A DAY,(21 DAYS ON / 7 DAYS OFF
     Route: 048
     Dates: start: 20190417, end: 20190930
  5. KISQALI [Suspect]
     Active Substance: RIBOCICLIB
     Indication: Metastases to bone
     Dosage: 600 MILLIGRAM, ONCE A DAY,DAILY (21 DAYS ON / 7 DAYS OFF
     Route: 048
     Dates: start: 20191001, end: 20191006
  6. KISQALI [Suspect]
     Active Substance: RIBOCICLIB
     Dosage: 600 MILLIGRAM, ONCE A DAY,(21 DAYS ON / 7 DAYS OFF
     Route: 048
     Dates: start: 20191007
  7. MORPHINE [Suspect]
     Active Substance: MORPHINE
     Indication: Bone pain
     Dosage: ONCE A DAY(30 OT, BID)
     Route: 048
  8. MORPHINE [Suspect]
     Active Substance: MORPHINE
     Dosage: (10 OT, ONCE IN THE MORNING, TWICE IN THE NOON, ONCE IN THE EVENING)
     Route: 048
     Dates: start: 201903, end: 20190620
  9. Novalgin [Concomitant]
     Indication: Product used for unknown indication
     Dosage: AS NECESSARY (DROPS)
     Route: 065
     Dates: start: 201901, end: 201910
  10. PANTOZOL [Concomitant]
     Active Substance: PANTOPRAZOLE SODIUM
     Indication: Product used for unknown indication
     Dosage: 40 MILLIGRAM, ONCE A DAY (40 MG, QD)
     Route: 065
     Dates: start: 201901

REACTIONS (9)
  - Febrile infection [Recovered/Resolved]
  - Pneumonia [Recovered/Resolved]
  - C-reactive protein increased [Recovered/Resolved]
  - Nausea [Recovered/Resolved]
  - Neutrophil count decreased [Recovered/Resolved]
  - Leukopenia [Recovered/Resolved]
  - Neutropenia [Recovered/Resolved]
  - Arthralgia [Not Recovered/Not Resolved]
  - Depression [Not Recovered/Not Resolved]

NARRATIVE: CASE EVENT DATE: 20190102
